FAERS Safety Report 13864755 (Version 1)
Quarter: 2017Q3

REPORT INFORMATION
  Report Type: Spontaneous
  Country: DE (occurrence: DE)
  Receive Date: 20170814
  Receipt Date: 20170814
  Transmission Date: 20171127
  Serious: Yes (Death)
  Sender: FDA-Public Use
  Company Number: DE-TEVA-784896GER

PATIENT
  Sex: Female

DRUGS (2)
  1. METOPROLOL-RATIOPHARM 100 MG TABLETTEN [Suspect]
     Active Substance: METOPROLOL
  2. CLONIDIN-RATIOPHARM 300 [Suspect]
     Active Substance: CLONIDINE

REACTIONS (3)
  - Death [Fatal]
  - Product substitution issue [None]
  - Drug intolerance [Unknown]
